FAERS Safety Report 8903184 (Version 5)
Quarter: 2014Q2

REPORT INFORMATION
  Report Type: Spontaneous
  Country: US (occurrence: US)
  Receive Date: 20121113
  Receipt Date: 20140430
  Transmission Date: 20141212
  Serious: Yes (Hospitalization)
  Sender: FDA-Public Use
  Company Number: US-B.I. PHARMACEUTICALS,INC./RIDGEFIELD-2012-BI-00090BP

PATIENT
  Age: 79 Year
  Sex: Male
  Weight: 92.99 kg

DRUGS (10)
  1. PRADAXA [Suspect]
     Indication: ANTICOAGULANT THERAPY
     Dosage: 300 MG
     Route: 048
     Dates: start: 20110928, end: 20111205
  2. PRADAXA [Suspect]
     Indication: ATRIAL FIBRILLATION
  3. COREG [Concomitant]
     Route: 065
     Dates: start: 2004
  4. RAMIPRIL [Concomitant]
     Dosage: 10 MG
     Route: 048
     Dates: end: 20111206
  5. DIGOXIN [Concomitant]
     Dosage: 0.5 MG
     Route: 048
     Dates: start: 1993
  6. VYTORIN [Concomitant]
     Dosage: 10 MG
     Route: 048
     Dates: start: 2007
  7. PROSCAR [Concomitant]
     Dosage: 5 MG
     Route: 048
     Dates: start: 2008
  8. LOVAZA [Concomitant]
     Route: 065
     Dates: start: 2007
  9. ALTACE [Concomitant]
     Dosage: 10 MG
     Route: 048
  10. HYTRIN [Concomitant]
     Route: 065
     Dates: start: 2009

REACTIONS (3)
  - Upper gastrointestinal haemorrhage [Recovered/Resolved]
  - Anaemia [Recovered/Resolved]
  - Abdominal pain upper [Recovered/Resolved]
